FAERS Safety Report 18337981 (Version 1)
Quarter: 2020Q4

REPORT INFORMATION
  Report Type: Report from Study
  Country: MX (occurrence: MX)
  Receive Date: 20201002
  Receipt Date: 20201002
  Transmission Date: 20210113
  Serious: Yes (Death)
  Sender: FDA-Public Use
  Company Number: NVSC2020MX267293

PATIENT
  Sex: Female
  Weight: 50 kg

DRUGS (1)
  1. ENTRESTO [Suspect]
     Active Substance: SACUBITRIL\VALSARTAN
     Indication: HYPERTENSION
     Dosage: 100 MG, BID (1 IN THE MORNING AND 1 AT NIGHT)
     Route: 065
     Dates: start: 2018

REACTIONS (2)
  - Death [Fatal]
  - Product use in unapproved indication [Unknown]
